FAERS Safety Report 4679613-8 (Version None)
Quarter: 2005Q2

REPORT INFORMATION
  Report Type: 
  Country: None (occurrence: None)
  Receive Date: 20050531
  Receipt Date: 20050518
  Transmission Date: 20051028
  Serious: Yes (Hospitalization)
  Sender: FDA-Public Use
  Company Number: B0380217A

PATIENT
  Age: 82 Year
  Sex: Male
  Weight: 49.8957 kg

DRUGS (4)
  1. VALTREX [Suspect]
     Indication: HERPES ZOSTER
     Dosage: 1000 MG/THREE TIMES PER DAY / ORAL
     Route: 048
     Dates: start: 20050416, end: 20050420
  2. BARNIDIPINE HYDROCHLRIDE [Concomitant]
  3. OLMESARTAN MDEOXOMIL [Concomitant]
  4. NITRAZEPAM [Concomitant]

REACTIONS (10)
  - BLOOD CREATININE INCREASED [None]
  - BLOOD UREA INCREASED [None]
  - CEREBELLAR ATAXIA [None]
  - CSF CELL COUNT INCREASED [None]
  - CSF PROTEIN INCREASED [None]
  - DYSARTHRIA [None]
  - ENCEPHALITIS VIRAL [None]
  - GENERAL PHYSICAL HEALTH DETERIORATION [None]
  - NEUROSIS [None]
  - RENAL DISORDER [None]
